FAERS Safety Report 21632186 (Version 1)
Quarter: 2022Q4

REPORT INFORMATION
  Report Type: Spontaneous
  Country: KZ (occurrence: KZ)
  Receive Date: 20221123
  Receipt Date: 20221123
  Transmission Date: 20230113
  Serious: Yes (Other)
  Sender: FDA-Public Use
  Company Number: KZ-002147023-NVSC2022KZ158647

PATIENT

DRUGS (4)
  1. SACUBITRIL\VALSARTAN [Suspect]
     Active Substance: SACUBITRIL\VALSARTAN
     Indication: Cardiac failure chronic
     Dosage: 50 MG, QD (2-3 MONTHS)
     Route: 065
  2. SACUBITRIL\VALSARTAN [Suspect]
     Active Substance: SACUBITRIL\VALSARTAN
     Indication: Atrial fibrillation
     Dosage: 100 MG, BID (3 WEEKS AFTER TAKING 50 MG)
     Route: 065
  3. SACUBITRIL\VALSARTAN [Suspect]
     Active Substance: SACUBITRIL\VALSARTAN
     Dosage: 50 MG, BID (AFTER FIRST TIME TAKING 100 MG)
     Route: 065
  4. CAPTOPRILUM [Concomitant]
     Indication: Hypertension
     Dosage: UNK
     Route: 065

REACTIONS (4)
  - Angioedema [Recovering/Resolving]
  - Swelling [Recovering/Resolving]
  - Contraindicated product administered [Unknown]
  - Product use issue [Unknown]
